FAERS Safety Report 12636185 (Version 1)
Quarter: 2016Q3

REPORT INFORMATION
  Report Type: Report from Study
  Country: CH (occurrence: CH)
  Receive Date: 20160809
  Receipt Date: 20160809
  Transmission Date: 20161109
  Serious: Yes (Hospitalization)
  Sender: FDA-Public Use
  Company Number: CH-ROCHE-1662045

PATIENT
  Age: 73 Year
  Sex: Male
  Weight: 74.6 kg

DRUGS (15)
  1. MAGNESIA S PELLEGRINO [Concomitant]
     Indication: CONSTIPATION
     Dosage: 1 TABLESPOON
     Route: 048
     Dates: start: 20151001
  2. VITAMIN D3 [Concomitant]
     Active Substance: CHOLECALCIFEROL
     Route: 048
     Dates: start: 20151112
  3. VITAMIN D3 [Concomitant]
     Active Substance: CHOLECALCIFEROL
     Route: 048
     Dates: start: 20151022, end: 20151022
  4. AMOXICILLIN. [Concomitant]
     Active Substance: AMOXICILLIN
     Indication: CYSTITIS
     Route: 048
     Dates: start: 20151116, end: 20151118
  5. FORTECORTIN [Concomitant]
     Active Substance: DEXAMETHASONE
     Indication: PRODUCTIVE COUGH
     Route: 048
     Dates: start: 201512, end: 20151217
  6. TAMSULOSIN HYDROCHLORIDE. [Concomitant]
     Active Substance: TAMSULOSIN HYDROCHLORIDE
     Indication: CYSTITIS
     Route: 048
     Dates: start: 20151117, end: 20151118
  7. RESYL PLUS [Concomitant]
     Active Substance: CODEINE PHOSPHATE\GUAIFENESIN
     Indication: PRODUCTIVE COUGH
     Route: 048
     Dates: start: 20151022, end: 20151112
  8. NEPHROTRANS [Concomitant]
     Active Substance: SODIUM BICARBONATE
     Indication: PROPHYLAXIS
     Route: 048
  9. LAXOBERON [Concomitant]
     Active Substance: SODIUM PICOSULFATE
     Indication: CONSTIPATION
     Route: 048
     Dates: start: 20151001
  10. VITAMIN D3 [Concomitant]
     Active Substance: CHOLECALCIFEROL
     Indication: VITAMIN D DEFICIENCY
     Route: 048
     Dates: start: 20151022, end: 20151022
  11. ATEZOLIZUMAB [Suspect]
     Active Substance: ATEZOLIZUMAB
     Indication: BLADDER TRANSITIONAL CELL CARCINOMA
     Dosage: MOST RECENT DOSE PRIOR TO THE EVENT: 12 NOV 2015
     Route: 042
     Dates: start: 20151001
  12. CEFTRIAXONE. [Concomitant]
     Active Substance: CEFTRIAXONE
     Indication: CYSTITIS
     Route: 042
     Dates: start: 20151114, end: 20151115
  13. ZINC GLUCONATE [Concomitant]
     Active Substance: ZINC GLUCONATE
     Indication: ZINC DEFICIENCY
     Route: 048
     Dates: start: 20151022, end: 20160202
  14. MOTILIUM [Concomitant]
     Active Substance: DOMPERIDONE
     Indication: ABDOMINAL DISTENSION
     Route: 048
     Dates: start: 20151112
  15. ZOMETA [Concomitant]
     Active Substance: ZOLEDRONIC ACID
     Indication: HYPERCALCAEMIA
     Route: 042
     Dates: start: 20151112, end: 20151112

REACTIONS (1)
  - Urinary retention [Recovered/Resolved]

NARRATIVE: CASE EVENT DATE: 20151114
